FAERS Safety Report 21376119 (Version 1)
Quarter: 2022Q3

REPORT INFORMATION
  Report Type: Spontaneous
  Country: US (occurrence: US)
  Receive Date: 20220926
  Receipt Date: 20220926
  Transmission Date: 20221027
  Serious: No
  Sender: FDA-Public Use
  Company Number: US-drreddys-SPO/USA/22/0154487

PATIENT
  Age: 19 Year
  Sex: Male

DRUGS (2)
  1. ZENATANE [Suspect]
     Active Substance: ISOTRETINOIN
     Indication: Product used for unknown indication
     Dosage: RMA ISSUE DATE: 26 JULY 2022 01:11:26 PM
  2. ZENATANE [Suspect]
     Active Substance: ISOTRETINOIN
     Dosage: RMA ISSUE DATE: 26 JANUARY 2022 04:45:19 PM, 03 MARCH 2022 11:30:27 AM, 05 APRIL 2022 10:23:30 AM, 1

REACTIONS (1)
  - Treatment noncompliance [Unknown]
